FAERS Safety Report 13885271 (Version 1)
Quarter: 2017Q3

REPORT INFORMATION
  Report Type: Spontaneous
  Country: FR (occurrence: FR)
  Receive Date: 20170821
  Receipt Date: 20170821
  Transmission Date: 20171127
  Serious: Yes (Life-Threatening, Hospitalization)
  Sender: FDA-Public Use
  Company Number: FR-ROCHE-1977098

PATIENT
  Age: 56 Year
  Sex: Male

DRUGS (15)
  1. TEMERIT [Concomitant]
     Active Substance: NEBIVOLOL
  2. COVERSYL [Concomitant]
     Active Substance: PERINDOPRIL
  3. FOSAMAX [Concomitant]
     Active Substance: ALENDRONATE SODIUM
  4. KESTINLYO [Concomitant]
     Active Substance: EBASTINE
  5. CELLCEPT [Suspect]
     Active Substance: MYCOPHENOLATE MOFETIL\MYCOPHENOLATE MOFETIL HYDROCHLORIDE
     Indication: EOSINOPHILIC GRANULOMATOSIS WITH POLYANGIITIS
     Route: 048
     Dates: start: 20130515
  6. CELLCEPT [Suspect]
     Active Substance: MYCOPHENOLATE MOFETIL\MYCOPHENOLATE MOFETIL HYDROCHLORIDE
     Route: 048
     Dates: end: 201110
  7. SYMBICORT [Concomitant]
     Active Substance: BUDESONIDE\FORMOTEROL FUMARATE DIHYDRATE
  8. AIROMIR [Concomitant]
     Active Substance: ALBUTEROL SULFATE
  9. IMUREL [Suspect]
     Active Substance: AZATHIOPRINE SODIUM
     Indication: EOSINOPHILIC GRANULOMATOSIS WITH POLYANGIITIS
     Route: 048
     Dates: start: 201210, end: 201301
  10. PREDNISOLONE. [Suspect]
     Active Substance: PREDNISOLONE
     Indication: EOSINOPHILIC GRANULOMATOSIS WITH POLYANGIITIS
     Route: 048
     Dates: start: 2007
  11. INEXIUM [Concomitant]
     Active Substance: ESOMEPRAZOLE
  12. CALTRATE [Concomitant]
     Active Substance: CALCIUM CARBONATE
  13. BECLOMETASONE CREAM [Concomitant]
  14. LOXEN (FRANCE) [Concomitant]
     Active Substance: NICARDIPINE HYDROCHLORIDE
  15. AZOPT [Concomitant]
     Active Substance: BRINZOLAMIDE

REACTIONS (3)
  - Intentional product use issue [Unknown]
  - Renal cancer [Recovering/Resolving]
  - Off label use [Unknown]

NARRATIVE: CASE EVENT DATE: 201706
